FAERS Safety Report 13756517 (Version 3)
Quarter: 2017Q3

REPORT INFORMATION
  Report Type: Report from Study
  Country: US (occurrence: BR)
  Receive Date: 20170714
  Receipt Date: 20170906
  Transmission Date: 20171127
  Serious: Yes (Death, Other)
  Sender: FDA-Public Use
  Company Number: US-SUNOVION-2017SUN003052

PATIENT
  Sex: Female
  Weight: 70 kg

DRUGS (2)
  1. GLYCOPYRROLATE. [Suspect]
     Active Substance: GLYCOPYRROLATE
     Indication: EMPHYSEMA
     Dosage: UNK, QD
     Route: 065
     Dates: start: 201602, end: 201702
  2. INDACATEROL AND GLYCOPYRROLATE [Suspect]
     Active Substance: GLYCOPYRROLATE\INDACATEROL MALEATE
     Indication: EMPHYSEMA
     Dosage: UNK
     Route: 065
     Dates: start: 201611

REACTIONS (5)
  - Lung disorder [Fatal]
  - Weight decreased [Unknown]
  - Cardiac arrest [Fatal]
  - Eating disorder [Unknown]
  - Dementia Alzheimer^s type [Unknown]
